FAERS Safety Report 13472602 (Version 3)
Quarter: 2017Q2

REPORT INFORMATION
  Report Type: Spontaneous
  Country: US (occurrence: US)
  Receive Date: 20170424
  Receipt Date: 20170614
  Transmission Date: 20170830
  Serious: Yes (Other)
  Sender: FDA-Public Use
  Company Number: US-BAYER-2017-075651

PATIENT
  Age: 29 Year
  Sex: Female
  Weight: 66.21 kg

DRUGS (1)
  1. MIRENA [Suspect]
     Active Substance: LEVONORGESTREL
     Indication: CONTRACEPTION
     Dosage: 20 MCG/24HR, CONT
     Route: 015
     Dates: start: 20161117

REACTIONS (7)
  - Foetal growth restriction [None]
  - Pelvic pain [None]
  - Uterine perforation [None]
  - Abdominal pain lower [None]
  - Pregnancy with contraceptive device [None]
  - Drug ineffective [None]
  - Oligohydramnios [None]

NARRATIVE: CASE EVENT DATE: 20161214
